FAERS Safety Report 9405695 (Version 2)
Quarter: 2013Q4

REPORT INFORMATION
  Report Type: Spontaneous
  Country: GB (occurrence: GB)
  Receive Date: 20130717
  Receipt Date: 20131114
  Transmission Date: 20140711
  Serious: Yes (Other)
  Sender: FDA-Public Use
  Company Number: GB-ACTAVIS-2013-12583

PATIENT
  Age: 53 Year
  Sex: Female
  Weight: 66 kg

DRUGS (15)
  1. ISOSORBIDE MONONITRATE (UNKNOWN) [Suspect]
     Indication: VASODILATION PROCEDURE
     Dosage: 30 MG, TOTAL; ONE DOSE OF 10MG (AFTERNOON) AND ONE DOSE OF 20MG (EVENING)
     Route: 048
     Dates: start: 20130619, end: 20130620
  2. CLINDAMYCIN [Concomitant]
     Indication: PRODUCT USED FOR UNKNOWN INDICATION
     Dosage: UNK
     Route: 065
     Dates: start: 20130531, end: 20130614
  3. MEROPENEM                          /01250502/ [Concomitant]
     Indication: PRODUCT USED FOR UNKNOWN INDICATION
     Dosage: UNK
     Route: 065
     Dates: start: 20130612, end: 20130621
  4. PIPERACILLIN + TAZOBACTAM [Concomitant]
     Indication: PRODUCT USED FOR UNKNOWN INDICATION
     Dosage: UNK
     Route: 065
  5. AMLODIPINE [Concomitant]
     Indication: PRODUCT USED FOR UNKNOWN INDICATION
     Dosage: UNK; ONGOING THERAPY
     Route: 065
     Dates: start: 20130611
  6. RANITIDINE                         /00550802/ [Concomitant]
     Indication: PRODUCT USED FOR UNKNOWN INDICATION
     Dosage: UNK
     Route: 065
  7. LANSOPRAZOLE [Concomitant]
     Indication: PRODUCT USED FOR UNKNOWN INDICATION
     Dosage: UNK
     Route: 065
  8. ALFENTANIL [Concomitant]
     Indication: PRODUCT USED FOR UNKNOWN INDICATION
     Dosage: UNK
     Route: 065
  9. PROPOFOL-LIPURO [Concomitant]
     Indication: PRODUCT USED FOR UNKNOWN INDICATION
     Dosage: UNK
     Route: 065
  10. DIAZEPAM [Concomitant]
     Indication: PRODUCT USED FOR UNKNOWN INDICATION
     Dosage: UNK
     Route: 065
  11. PARACETAMOL [Concomitant]
     Indication: PRODUCT USED FOR UNKNOWN INDICATION
     Dosage: UNK; ONGOING THERAPY.
     Route: 065
     Dates: start: 20130609
  12. AMPHOTERICIN B [Concomitant]
     Indication: PRODUCT USED FOR UNKNOWN INDICATION
     Dosage: UNK; ONGOING THERAPY.
     Route: 065
     Dates: start: 20130605
  13. ENOXAPARIN [Concomitant]
     Indication: PRODUCT USED FOR UNKNOWN INDICATION
     Dosage: UNK; ONGOING THERAPY.
     Route: 065
     Dates: start: 20130531
  14. TOBRAMYCIN [Concomitant]
     Indication: PRODUCT USED FOR UNKNOWN INDICATION
     Dosage: UNK; ONGOING THERAPY.
     Route: 065
     Dates: start: 20130605
  15. COLISTIN [Concomitant]
     Indication: PRODUCT USED FOR UNKNOWN INDICATION
     Dosage: UNK; ONGOING THERAPY
     Route: 065
     Dates: start: 20130605

REACTIONS (2)
  - Rash [Recovered/Resolved]
  - Swollen tongue [Recovered/Resolved]
